FAERS Safety Report 22143071 (Version 5)
Quarter: 2023Q2

REPORT INFORMATION
  Report Type: Spontaneous
  Country: KR (occurrence: KR)
  Receive Date: 20230327
  Receipt Date: 20230628
  Transmission Date: 20230722
  Serious: No
  Sender: FDA-Public Use
  Company Number: KR-PFIZER INC-PV202300052426

PATIENT
  Age: 13 Year
  Sex: Male

DRUGS (1)
  1. GENOTROPIN [Suspect]
     Active Substance: SOMATROPIN
     Indication: Short stature
     Dosage: 6 TIMES A WEEK
     Dates: start: 20230201, end: 20230319

REACTIONS (2)
  - Product contamination physical [Unknown]
  - Poor quality device used [Unknown]

NARRATIVE: CASE EVENT DATE: 20230319
